FAERS Safety Report 8585406-1 (Version None)
Quarter: 2012Q3

REPORT INFORMATION
  Report Type: 
  Country: None (occurrence: None)
  Receive Date: 20120810
  Receipt Date: 20120803
  Transmission Date: 20120928
  Serious: Yes (Hospitalization, Other)
  Sender: FDA-Public Use
  Company Number: CL-009507513-2011SP045695

PATIENT

DRUGS (6)
  1. LEVOTHYROXINE SODIUM [Concomitant]
     Indication: THYROIDITIS CHRONIC
     Dosage: 100 MG, UNKNOWN
     Route: 065
     Dates: start: 20110301
  2. AZULFIDINE [Concomitant]
     Indication: INFLAMMATORY BOWEL DISEASE
     Dosage: UNK, UNKNOWN
     Route: 065
     Dates: start: 20110801
  3. IMPLANON [Suspect]
     Indication: CONTRACEPTION
     Dosage: 68 MG, TRIENNIAL
     Route: 059
     Dates: start: 20110208
  4. LEVOTHYROXINE SODIUM [Concomitant]
     Indication: HYPOTHYROIDISM
  5. AZULFIDINE [Concomitant]
     Indication: COLITIS ULCERATIVE
  6. MESALAMINE [Concomitant]
     Indication: INFLAMMATORY BOWEL DISEASE
     Dosage: UNK, UNKNOWN
     Route: 065
     Dates: start: 20110801

REACTIONS (10)
  - HYPOTHYROIDISM [None]
  - MICTURITION URGENCY [None]
  - METRORRHAGIA [None]
  - COLITIS ULCERATIVE [None]
  - ABORTION MISSED [None]
  - ABORTION THREATENED [None]
  - WEIGHT INCREASED [None]
  - PREGNANCY WITH IMPLANT CONTRACEPTIVE [None]
  - CAESAREAN SECTION [None]
  - AMENORRHOEA [None]
